FAERS Safety Report 19588060 (Version 1)
Quarter: 2021Q3

REPORT INFORMATION
  Report Type: Spontaneous
  Country: PK (occurrence: PK)
  Receive Date: 20210721
  Receipt Date: 20210721
  Transmission Date: 20211014
  Serious: Yes (Life-Threatening, Disabling, Other)
  Sender: FDA-Public Use
  Company Number: None

PATIENT
  Age: 22 Year
  Sex: Male
  Weight: 55 kg

DRUGS (4)
  1. FEXOFENADINE [Concomitant]
     Active Substance: FEXOFENADINE HYDROCHLORIDE
  2. BETAMETHASONE. [Suspect]
     Active Substance: BETAMETHASONE
     Indication: DERMATITIS ATOPIC
     Route: 061
  3. VASELINE PURE [Concomitant]
     Active Substance: PETROLATUM
  4. CLOBETASOL [Suspect]
     Active Substance: CLOBETASOL
     Indication: DERMATITIS ATOPIC
     Route: 061

REACTIONS (5)
  - Suicidal ideation [None]
  - Injury [None]
  - Adrenal insufficiency [None]
  - Steroid withdrawal syndrome [None]
  - Loss of therapeutic response [None]

NARRATIVE: CASE EVENT DATE: 20190603
